FAERS Safety Report 9744658 (Version 1)
Quarter: 2013Q4

REPORT INFORMATION
  Report Type: Spontaneous
  Country: CA (occurrence: CA)
  Receive Date: 20131210
  Receipt Date: 20131210
  Transmission Date: 20140711
  Serious: Yes (Other)
  Sender: FDA-Public Use
  Company Number: CA-AMGEN-CANSP2013086472

PATIENT
  Age: 72 Year
  Sex: Female

DRUGS (2)
  1. ENBREL [Suspect]
     Indication: PRODUCT USED FOR UNKNOWN INDICATION
     Dosage: UNK
     Route: 058
  2. METHOTREXATE [Suspect]
     Indication: PRODUCT USED FOR UNKNOWN INDICATION
     Dosage: UNK
     Route: 065

REACTIONS (6)
  - Nasal ulcer [Recovered/Resolved]
  - Pharyngeal ulceration [Recovered/Resolved]
  - Abdominal discomfort [Recovered/Resolved]
  - Adverse drug reaction [Recovered/Resolved]
  - Aphagia [Recovered/Resolved]
  - Sleep disorder [Recovered/Resolved]
